FAERS Safety Report 4730042-8 (Version None)
Quarter: 2005Q3

REPORT INFORMATION
  Report Type: 
  Country: None (occurrence: None)
  Receive Date: 20050801
  Receipt Date: 20050720
  Transmission Date: 20060218
  Serious: Yes (Hospitalization)
  Sender: FDA-Public Use
  Company Number: US-JNJFOC-20050703910

PATIENT
  Sex: Male

DRUGS (4)
  1. REMICADE [Suspect]
     Indication: CROHN'S DISEASE
  2. STEROIDS [Concomitant]
  3. ASACOL [Concomitant]
  4. METHOTREXATE [Concomitant]

REACTIONS (5)
  - CROHN'S DISEASE [None]
  - ESCHERICHIA INFECTION [None]
  - FATIGUE [None]
  - SALMONELLOSIS [None]
  - URINARY TRACT INFECTION [None]
